FAERS Safety Report 4932524-2 (Version None)
Quarter: 2006Q1

REPORT INFORMATION
  Report Type: 
  Country: None (occurrence: None)
  Receive Date: 20060303
  Receipt Date: 20060221
  Transmission Date: 20060701
  Serious: Yes (Hospitalization)
  Sender: FDA-Public Use
  Company Number: US-MERCK-0602USA05493

PATIENT
  Age: 90 Year
  Sex: Female
  Weight: 61 kg

DRUGS (2)
  1. VIOXX [Suspect]
     Indication: ARTHRITIS
     Route: 048
     Dates: start: 20030201, end: 20040601
  2. VIOXX [Suspect]
     Indication: PAIN
     Route: 048
     Dates: start: 20030201, end: 20040601

REACTIONS (8)
  - ANAEMIA [None]
  - CEREBROVASCULAR ACCIDENT [None]
  - DIVERTICULUM [None]
  - HEMIPARESIS [None]
  - HIATUS HERNIA [None]
  - HYPONATRAEMIA [None]
  - OESOPHAGITIS [None]
  - RECTAL HAEMORRHAGE [None]
